FAERS Safety Report 4522668-1 (Version None)
Quarter: 2004Q4

REPORT INFORMATION
  Report Type: 
  Country: None (occurrence: None)
  Receive Date: 20041209
  Receipt Date: 20041129
  Transmission Date: 20050328
  Serious: Yes (Other)
  Sender: FDA-Public Use
  Company Number: ES-ABBOTT-04P-144-0281650-00

PATIENT
  Sex: Male
  Weight: 75 kg

DRUGS (1)
  1. KOFRON UNIDIA [Suspect]
     Indication: TOOTH DISORDER
     Route: 048
     Dates: start: 20041110, end: 20041115

REACTIONS (9)
  - BACK PAIN [None]
  - BLOOD PRESSURE INCREASED [None]
  - CONJUNCTIVAL HAEMORRHAGE [None]
  - DRY SKIN [None]
  - EYE PAIN [None]
  - HEADACHE [None]
  - HYPERAEMIA [None]
  - SKIN DESQUAMATION [None]
  - TACHYCARDIA [None]
